FAERS Safety Report 9823230 (Version 1)
Quarter: 2014Q1

REPORT INFORMATION
  Report Type: Spontaneous
  Country: FR (occurrence: FR)
  Receive Date: 20140116
  Receipt Date: 20140116
  Transmission Date: 20141002
  Serious: Yes (Disabling)
  Sender: FDA-Public Use
  Company Number: FR-WATSON-2013-24635

PATIENT
  Age: 79 Year
  Sex: Male

DRUGS (12)
  1. GABAPENTINE [Suspect]
     Indication: TREMOR
     Dosage: 600 MG, DAILY
     Route: 048
     Dates: start: 20130313, end: 20130329
  2. GABAPENTINE [Suspect]
     Dosage: 300 MG, DAILY
     Route: 048
     Dates: start: 20130304, end: 20130312
  3. CORDARONE [Concomitant]
     Indication: PRODUCT USED FOR UNKNOWN INDICATION
     Dosage: 1 TABLET, 5 DAYS/7
     Route: 065
     Dates: start: 201104
  4. DEPAKINE CHRONO [Concomitant]
     Indication: PRODUCT USED FOR UNKNOWN INDICATION
     Dosage: 2 DF, DAILY
     Route: 065
     Dates: end: 20130306
  5. PLAVIX [Concomitant]
     Indication: PRODUCT USED FOR UNKNOWN INDICATION
     Dosage: 1 DF, DAILY
     Route: 065
  6. INEXIUM                            /01479302/ [Concomitant]
     Indication: PRODUCT USED FOR UNKNOWN INDICATION
     Dosage: 40 MG, DAILY
     Route: 065
  7. LASILIX                            /00032601/ [Concomitant]
     Indication: PRODUCT USED FOR UNKNOWN INDICATION
     Dosage: 80 MG, DAILY
     Route: 065
  8. ZITHROMAX [Concomitant]
     Indication: PRODUCT USED FOR UNKNOWN INDICATION
     Dosage: 250 MG, DAILY
     Route: 065
  9. SYMBICORT [Concomitant]
     Indication: PRODUCT USED FOR UNKNOWN INDICATION
     Dosage: 2 TIMES/DAY
     Route: 065
  10. NOVONORM [Concomitant]
     Indication: PRODUCT USED FOR UNKNOWN INDICATION
     Dosage: 1.5 MG, DAILY
     Route: 065
     Dates: start: 201212
  11. LEVOTHYROX [Concomitant]
     Indication: PRODUCT USED FOR UNKNOWN INDICATION
     Dosage: 25 UG/DAY
     Route: 065
     Dates: start: 201212
  12. LANTUS [Concomitant]
     Indication: PRODUCT USED FOR UNKNOWN INDICATION
     Dosage: 16 U/DAY

REACTIONS (2)
  - Tremor [Recovering/Resolving]
  - Condition aggravated [Recovering/Resolving]
